FAERS Safety Report 7926345-6 (Version None)
Quarter: 2011Q4

REPORT INFORMATION
  Report Type: 
  Country: None (occurrence: None)
  Receive Date: 20111118
  Receipt Date: 20111108
  Transmission Date: 20120403
  Serious: No
  Sender: FDA-Public Use
  Company Number: US-BIOGENIDEC-2011BI037194

PATIENT
  Age: 32 Year
  Sex: Female

DRUGS (1)
  1. TYSABRI [Suspect]
     Indication: MULTIPLE SCLEROSIS
     Route: 042
     Dates: start: 20110401

REACTIONS (8)
  - POLYMENORRHOEA [None]
  - LOSS OF CONTROL OF LEGS [None]
  - INFECTION SUSCEPTIBILITY INCREASED [None]
  - MUSCLE SPASMS [None]
  - MUSCULOSKELETAL STIFFNESS [None]
  - MIGRAINE [None]
  - VISION BLURRED [None]
  - BACK PAIN [None]
